FAERS Safety Report 6417800-9 (Version None)
Quarter: 2009Q4

REPORT INFORMATION
  Report Type: 
  Country: None (occurrence: None)
  Receive Date: 20091027
  Receipt Date: 20091027
  Transmission Date: 20100525
  Serious: Yes (Life-Threatening)
  Sender: FDA-Public Use
  Company Number: None

PATIENT
  Age: 58 Year
  Sex: Female
  Weight: 52 kg

DRUGS (9)
  1. LIDOCAINE 1% [Suspect]
     Indication: MEDICAL DEVICE COMPLICATION
     Dosage: 10ML PCEA ONCE
     Dates: start: 20090923
  2. LIDOCAINE 1% [Suspect]
     Indication: PAIN
     Dosage: 10ML PCEA ONCE
     Dates: start: 20090923
  3. HEPARIN [Concomitant]
  4. BISACODYL [Concomitant]
  5. DIPHENHYDRAMINE [Concomitant]
  6. MAGNESIUM SULFATE [Concomitant]
  7. METRONIDAZOLE [Concomitant]
  8. POTASSIUM CHLORIDE [Concomitant]
  9. RANITIDINE [Concomitant]

REACTIONS (2)
  - BLOOD PRESSURE DECREASED [None]
  - OXYGEN SATURATION DECREASED [None]
